FAERS Safety Report 14313383 (Version 1)
Quarter: 2017Q4

REPORT INFORMATION
  Report Type: Spontaneous
  Country: US (occurrence: US)
  Receive Date: 20171221
  Receipt Date: 20171221
  Transmission Date: 20180321
  Serious: Yes (Other)
  Sender: FDA-Public Use
  Company Number: US-PFIZER INC-2017542988

PATIENT
  Sex: Female

DRUGS (2)
  1. INOFLO [Suspect]
     Active Substance: NITRIC OXIDE
     Indication: PULMONARY HYPERTENSION
     Dosage: 0.05 PART PER MILLION (PPM)
     Route: 055
     Dates: start: 20170127, end: 20170130
  2. AMPICILLIN SODIUM. [Suspect]
     Active Substance: AMPICILLIN SODIUM
     Indication: PULMONARY HYPERTENSION
     Dosage: UNK

REACTIONS (1)
  - Acute kidney injury [Not Recovered/Not Resolved]

NARRATIVE: CASE EVENT DATE: 20170128
